FAERS Safety Report 6810971-1 (Version None)
Quarter: 2010Q2

REPORT INFORMATION
  Report Type: 
  Country: None (occurrence: None)
  Receive Date: 20100630
  Receipt Date: 20100621
  Transmission Date: 20101027
  Serious: Yes (Other)
  Sender: FDA-Public Use
  Company Number: US-AMGEN-QUU401101

PATIENT
  Sex: Male
  Weight: 84 kg

DRUGS (14)
  1. EPOGEN [Suspect]
     Indication: DIALYSIS
     Route: 065
  2. ARANESP [Suspect]
     Indication: RENAL FAILURE CHRONIC
     Route: 058
     Dates: start: 20100405
  3. PROGRAF [Concomitant]
  4. PREDNISONE [Concomitant]
  5. CLONIDINE [Concomitant]
  6. AMLODIPINE [Concomitant]
  7. MAGNESIUM OXIDE [Concomitant]
  8. CELLCEPT [Concomitant]
  9. FUROSEMIDE [Concomitant]
  10. GEMFIBROZIL [Concomitant]
  11. ASCAL [Concomitant]
  12. LABETALOL HCL [Concomitant]
  13. ZAROXOLYN [Concomitant]
  14. POTASSIUM CHLORIDE [Concomitant]

REACTIONS (6)
  - ARTHRALGIA [None]
  - BACK PAIN [None]
  - HYPERSENSITIVITY [None]
  - MUSCLE FATIGUE [None]
  - MUSCULAR WEAKNESS [None]
  - MYALGIA [None]
